APPROVED DRUG PRODUCT: GIVLAARI
Active Ingredient: GIVOSIRAN SODIUM
Strength: EQ 189MG BASE/ML (EQ 189MG BASE/ML)
Dosage Form/Route: SOLUTION;SUBCUTANEOUS
Application: N212194 | Product #001
Applicant: ALNYLAM PHARMACEUTICALS INC
Approved: Nov 20, 2019 | RLD: Yes | RS: Yes | Type: RX

PATENTS:
Patent 9631193 | Expires: Mar 15, 2033
Patent 10131907 | Expires: Aug 24, 2028
Patent 10125364 | Expires: Mar 15, 2033
Patent 8106022 | Expires: Dec 12, 2029
Patent 10119143 | Expires: Oct 3, 2034
Patent 9133461 | Expires: Nov 30, 2033
Patent 8828956 | Expires: Dec 4, 2028
Patent 11028392 | Expires: Oct 3, 2034

EXCLUSIVITY:
Code: ODE-273 | Date: Nov 20, 2026